FAERS Safety Report 8969131 (Version 2)
Quarter: 2012Q4

REPORT INFORMATION
  Report Type: 
  Country: SK (occurrence: SK)
  Receive Date: 20121217
  Receipt Date: 20121220
  Transmission Date: 20130627
  Serious: Yes (Other)
  Sender: FDA-Public Use
  Company Number: SK-ROCHE-1168785

PATIENT
  Age: 22 Year
  Sex: Male

DRUGS (3)
  1. VEMURAFENIB [Suspect]
     Indication: MALIGNANT MELANOMA
     Route: 048
     Dates: start: 20120705, end: 20120716
  2. INTRON [Concomitant]
     Route: 065
  3. DACARBAZINE [Concomitant]
     Route: 065

REACTIONS (5)
  - Skin toxicity [Recovered/Resolved]
  - Arthralgia [Not Recovered/Not Resolved]
  - Fatigue [Recovered/Resolved]
  - Alanine aminotransferase increased [Recovered/Resolved]
  - Iridocyclitis [Not Recovered/Not Resolved]
